FAERS Safety Report 8461277 (Version 2)
Quarter: 2013Q1

REPORT INFORMATION
  Report Type: Spontaneous
  Country: US (occurrence: US)
  Receive Date: 20120315
  Receipt Date: 20130307
  Transmission Date: 20140127
  Serious: Yes (Hospitalization)
  Sender: FDA-Public Use
  Company Number: US-GLAXOSMITHKLINE-A0898968A

PATIENT
  Age: 44 Year
  Sex: Male
  Weight: 112.7 kg

DRUGS (1)
  1. AVANDIA [Suspect]
     Indication: TYPE 2 DIABETES MELLITUS
     Route: 048
     Dates: start: 20050228, end: 20070429

REACTIONS (3)
  - Myocardial infarction [Recovering/Resolving]
  - Coronary artery disease [Unknown]
  - Cardiovascular disorder [Unknown]
